FAERS Safety Report 8956092 (Version 1)
Quarter: 2012Q4

REPORT INFORMATION
  Report Type: 
  Country: US (occurrence: US)
  Receive Date: 20121210
  Receipt Date: 20121210
  Transmission Date: 20130627
  Serious: Yes (Other)
  Sender: FDA-Public Use
  Company Number: US-BAYER-2012-127926

PATIENT
  Age: 31 Year
  Sex: Female
  Weight: 120.18 kg

DRUGS (5)
  1. YASMIN [Suspect]
  2. PROAIR [Concomitant]
  3. TYLENOL [Concomitant]
  4. ETODOLAC [Concomitant]
  5. VALTREX [Concomitant]

REACTIONS (1)
  - Deep vein thrombosis [Recovered/Resolved]
